FAERS Safety Report 8159390-9 (Version None)
Quarter: 2012Q1

REPORT INFORMATION
  Report Type: 
  Country: None (occurrence: None)
  Receive Date: 20120223
  Receipt Date: 20120213
  Transmission Date: 20120608
  Serious: Yes (Hospitalization)
  Sender: FDA-Public Use
  Company Number: US-ELI_LILLY_AND_COMPANY-US201112004298

PATIENT
  Sex: Male

DRUGS (4)
  1. TESTOSTERONE [Concomitant]
     Dosage: UNK, 2/M
  2. CORTICOSTEROIDS [Concomitant]
  3. HYDROCORTISONE [Concomitant]
  4. HUMATROPE [Suspect]
     Indication: PITUITARY TUMOUR
     Dosage: 1.4 MG, QD
     Route: 058

REACTIONS (3)
  - HIP ARTHROPLASTY [None]
  - MOBILITY DECREASED [None]
  - PROCEDURAL PAIN [None]
